FAERS Safety Report 18077723 (Version 1)
Quarter: 2020Q3

REPORT INFORMATION
  Report Type: Other
  Country: FR (occurrence: FR)
  Receive Date: 20200727
  Receipt Date: 20200727
  Transmission Date: 20201103
  Serious: Yes (Hospitalization)
  Sender: FDA-Public Use
  Company Number: FR-INCYTE CORPORATION-2020IN006961

PATIENT

DRUGS (1)
  1. JAKAVI [Suspect]
     Active Substance: RUXOLITINIB
     Indication: CHRONIC GRAFT VERSUS HOST DISEASE IN SKIN
     Dosage: 40 MG, QD
     Route: 048
     Dates: start: 20180626, end: 201905

REACTIONS (1)
  - Alveolar proteinosis [Unknown]

NARRATIVE: CASE EVENT DATE: 201904
